FAERS Safety Report 11391687 (Version 2)
Quarter: 2015Q4

REPORT INFORMATION
  Report Type: Report from Study
  Country: US (occurrence: US)
  Receive Date: 20150818
  Receipt Date: 20151001
  Transmission Date: 20160304
  Serious: Yes (Hospitalization, Other)
  Sender: FDA-Public Use
  Company Number: US-SA-2015SA104031

PATIENT
  Age: 69 Year
  Sex: Female
  Weight: 61.1 kg

DRUGS (49)
  1. INSULIN [Concomitant]
     Active Substance: INSULIN NOS
  2. ATIVAN [Concomitant]
     Active Substance: LORAZEPAM
  3. VANCOMYCIN [Concomitant]
     Active Substance: VANCOMYCIN
     Indication: ANTI-INFECTIVE THERAPY
     Dosage: IVBP
     Route: 042
  4. MICAFUNGIN [Concomitant]
     Active Substance: MICAFUNGIN
     Route: 042
     Dates: start: 20150712
  5. CELLCEPT [Concomitant]
     Active Substance: MYCOPHENOLATE MOFETIL\MYCOPHENOLATE MOFETIL HYDROCHLORIDE
  6. NITROSTAT [Concomitant]
     Active Substance: NITROGLYCERIN
  7. NITRO [Concomitant]
     Active Substance: NITROGLYCERIN
     Dosage: PATCH
  8. TRIAMCINOLONE [Concomitant]
     Active Substance: TRIAMCINOLONE
  9. ALBUMIN [Concomitant]
     Active Substance: ALBUMIN (HUMAN)
  10. RENOVA [Concomitant]
     Active Substance: TRETINOIN
  11. DILAUDID [Concomitant]
     Active Substance: HYDROMORPHONE HYDROCHLORIDE
  12. ACTIGALL [Concomitant]
     Active Substance: URSODIOL
  13. SOLU-MEDROL [Concomitant]
     Active Substance: METHYLPREDNISOLONE SODIUM SUCCINATE
  14. METOPROLOL [Concomitant]
     Active Substance: METOPROLOL
     Dosage: 25 Q8
  15. METHYLPREDNISOLONE. [Concomitant]
     Active Substance: METHYLPREDNISOLONE
     Indication: GRAFT VERSUS HOST DISEASE IN LIVER
  16. TYLENOL [Concomitant]
     Active Substance: ACETAMINOPHEN
  17. REGLAN [Concomitant]
     Active Substance: METOCLOPRAMIDE HYDROCHLORIDE
  18. CLOFARABINE [Suspect]
     Active Substance: CLOFARABINE
     Indication: BONE MARROW CONDITIONING REGIMEN
     Route: 042
     Dates: start: 20150629, end: 20150703
  19. MEROPENEM. [Concomitant]
     Active Substance: MEROPENEM
  20. BUDESONIDE. [Concomitant]
     Active Substance: BUDESONIDE
  21. FAMOTIDINE. [Concomitant]
     Active Substance: FAMOTIDINE
  22. ABELCET [Concomitant]
     Active Substance: AMPHOTERICIN B\DIMYRISTOYLPHOSPHATIDYLCHOLINE, DL-\DIMYRISTOYLPHOSPHATIDYLGLYCEROL, DL-
     Route: 042
  23. ACYCLOVIR. [Concomitant]
     Active Substance: ACYCLOVIR
     Route: 042
     Dates: start: 20150707
  24. HYDRALAZINE [Concomitant]
     Active Substance: HYDRALAZINE HYDROCHLORIDE
  25. COREG [Concomitant]
     Active Substance: CARVEDILOL
  26. VITAMIN K [Concomitant]
     Active Substance: PHYTONADIONE
  27. SYNTHROID [Concomitant]
     Active Substance: LEVOTHYROXINE SODIUM
  28. HALDOL [Concomitant]
     Active Substance: HALOPERIDOL
  29. LEVOFLOXACIN. [Concomitant]
     Active Substance: LEVOFLOXACIN
     Route: 042
  30. AMLODIPINE [Concomitant]
     Active Substance: AMLODIPINE BESYLATE
  31. BIOTENE [Concomitant]
     Dosage: RINSES
  32. LACTULOSE. [Concomitant]
     Active Substance: LACTULOSE
  33. PANTOPRAZOLE [Concomitant]
     Active Substance: PANTOPRAZOLE SODIUM
  34. PROTONIX [Concomitant]
     Active Substance: PANTOPRAZOLE SODIUM
  35. COMPAZINE [Concomitant]
     Active Substance: PROCHLORPERAZINE MALEATE
  36. VANCOMYCIN [Concomitant]
     Active Substance: VANCOMYCIN
     Indication: ANTI-INFECTIVE THERAPY
     Route: 042
     Dates: start: 20140710
  37. MELPHALAN [Suspect]
     Active Substance: MELPHALAN
     Indication: BONE MARROW CONDITIONING REGIMEN
     Route: 042
     Dates: start: 20150704
  38. SCOPOLAMINE [Concomitant]
     Active Substance: SCOPOLAMINE
     Dosage: PATCH
  39. KYTRIL [Concomitant]
     Active Substance: GRANISETRON HYDROCHLORIDE
     Dosage: Q12
  40. PREDNISONE. [Concomitant]
     Active Substance: PREDNISONE
     Dosage: Q12
     Route: 042
  41. FOSCARNET [Concomitant]
     Active Substance: FOSCARNET
  42. URSODIOL. [Concomitant]
     Active Substance: URSODIOL
  43. LABETALOL [Concomitant]
     Active Substance: LABETALOL\LABETALOL HYDROCHLORIDE
  44. GANCICLOVIR. [Concomitant]
     Active Substance: GANCICLOVIR
  45. ENALAPRIL [Concomitant]
     Active Substance: ENALAPRIL
  46. LEVOTHYROXINE. [Concomitant]
     Active Substance: LEVOTHYROXINE
  47. AZTREONAM. [Concomitant]
     Active Substance: AZTREONAM
     Route: 042
     Dates: start: 20150708
  48. BACTRIM [Concomitant]
     Active Substance: SULFAMETHOXAZOLE\TRIMETHOPRIM
  49. TACROLIMUS. [Concomitant]
     Active Substance: TACROLIMUS

REACTIONS (7)
  - Chills [Unknown]
  - Hepatitis acute [Recovered/Resolved]
  - Lymphadenopathy [Unknown]
  - Tenderness [Unknown]
  - Myocarditis [Recovered/Resolved]
  - Escherichia bacteraemia [Unknown]
  - Multi-organ failure [Recovered/Resolved]

NARRATIVE: CASE EVENT DATE: 20150708
